FAERS Safety Report 5382762-2 (Version None)
Quarter: 2007Q2

REPORT INFORMATION
  Report Type: 
  Country: None (occurrence: None)
  Receive Date: 20070629
  Receipt Date: 20070223
  Transmission Date: 20071010
  Serious: Yes (Other)
  Sender: FDA-Public Use
  Company Number: US200702005157

PATIENT
  Age: 35 Year
  Sex: Female

DRUGS (2)
  1. HUMALOG [Suspect]
     Indication: DIABETES MELLITUS
     Dates: start: 19930101
  2. HUMULIN N [Suspect]
     Indication: DIABETES MELLITUS
     Dates: start: 19930101

REACTIONS (11)
  - BLOOD GLUCOSE DECREASED [None]
  - CONCUSSION [None]
  - DEPRESSED LEVEL OF CONSCIOUSNESS [None]
  - DYSKINESIA [None]
  - FALL [None]
  - HEADACHE [None]
  - HYPOGLYCAEMIC SEIZURE [None]
  - LACERATION [None]
  - MUSCLE SPASMS [None]
  - MUSCLE TWITCHING [None]
  - VOMITING [None]
